FAERS Safety Report 8348338-X (Version None)
Quarter: 2012Q2

REPORT INFORMATION
  Report Type: 
  Country: None (occurrence: None)
  Receive Date: 20120509
  Receipt Date: 20120504
  Transmission Date: 20120825
  Serious: Yes (Other)
  Sender: FDA-Public Use
  Company Number: BR-PFIZER INC-2012110774

PATIENT
  Age: 33 Year
  Sex: Male
  Weight: 83 kg

DRUGS (2)
  1. LYRICA [Suspect]
     Indication: SURGERY
     Dosage: 2 TABLETS OF 150MG DAILY
     Route: 048
     Dates: start: 20120426
  2. ACETAMINOPHEN W/ CODEINE [Concomitant]
     Indication: PAIN
     Dosage: 2 TABLETS OF 300MG DAILY

REACTIONS (3)
  - CONSTIPATION [None]
  - PAIN [None]
  - SPINAL CORD HAEMORRHAGE [None]
